FAERS Safety Report 5429797-9 (Version None)
Quarter: 2007Q3

REPORT INFORMATION
  Report Type: 
  Country: None (occurrence: None)
  Receive Date: 20070829
  Receipt Date: 20070814
  Transmission Date: 20080115
  Serious: Yes (Life-Threatening, Hospitalization)
  Sender: FDA-Public Use
  Company Number: CA-GENENTECH-241915

PATIENT
  Sex: Male
  Weight: 93 kg

DRUGS (16)
  1. BEVACIZUMAB [Suspect]
     Indication: COLON CANCER
     Dosage: 473 MG, Q2W
     Route: 042
     Dates: start: 20070116, end: 20070515
  2. OXALIPLATIN [Suspect]
     Indication: COLON CANCER
     Dosage: 171 MG, Q2W
     Route: 042
     Dates: start: 20070116, end: 20070515
  3. LEUCOVORIN CALCIUM [Suspect]
     Indication: COLON CANCER
     Dosage: 400 MG, Q2W
     Route: 042
     Dates: start: 20070118, end: 20070515
  4. FLUOROURACIL [Suspect]
     Indication: COLON CANCER
     Dosage: 800 MG, Q2W
     Route: 050
     Dates: start: 20070118, end: 20070515
  5. DECADRON [Concomitant]
     Indication: DRUG USE FOR UNKNOWN INDICATION
     Dosage: UNK, UNK
     Dates: start: 20070116
  6. PROCHLORPERAZINE [Concomitant]
     Indication: DRUG USE FOR UNKNOWN INDICATION
     Dosage: UNK, UNK
     Dates: start: 20070116
  7. METFORMIN [Concomitant]
     Indication: DRUG USE FOR UNKNOWN INDICATION
     Dates: start: 20060915
  8. GLYBURIDE [Concomitant]
     Dosage: UNK, UNK
     Dates: start: 20060915
  9. ALTACE [Concomitant]
     Indication: DRUG USE FOR UNKNOWN INDICATION
     Dates: start: 20060915
  10. ZOFRAN [Concomitant]
     Indication: DRUG USE FOR UNKNOWN INDICATION
     Dates: start: 20070116
  11. LIPITOR [Concomitant]
     Indication: DRUG USE FOR UNKNOWN INDICATION
     Dates: start: 20060915
  12. ASPIRIN [Concomitant]
     Indication: DRUG USE FOR UNKNOWN INDICATION
     Dates: start: 20060915
  13. BENADRYL [Concomitant]
     Indication: DRUG USE FOR UNKNOWN INDICATION
     Dates: start: 20070117
  14. GRAVOL TAB [Concomitant]
     Indication: DRUG USE FOR UNKNOWN INDICATION
     Dates: start: 20070131
  15. ADALAT [Concomitant]
     Indication: DRUG USE FOR UNKNOWN INDICATION
     Dates: start: 20070220
  16. CELEXA [Concomitant]
     Indication: DRUG USE FOR UNKNOWN INDICATION
     Dates: start: 20070402

REACTIONS (1)
  - ANAPHYLACTIC REACTION [None]
